FAERS Safety Report 25610884 (Version 1)
Quarter: 2025Q3

REPORT INFORMATION
  Report Type: Spontaneous
  Country: US (occurrence: US)
  Receive Date: 20250728
  Receipt Date: 20250728
  Transmission Date: 20251020
  Serious: Yes (Hospitalization, Other)
  Sender: HIKMA
  Company Number: US-HIKMA PHARMACEUTICALS USA INC.-US-H14001-25-08755

PATIENT
  Sex: Female

DRUGS (4)
  1. DEXAMETHASONE [Suspect]
     Active Substance: DEXAMETHASONE
     Indication: Oral surgery
     Route: 065
     Dates: start: 20230628
  2. DSUVIA [Suspect]
     Active Substance: SUFENTANIL
     Indication: Oral surgery
     Route: 065
     Dates: start: 20230628
  3. PROMETHAZINE [Suspect]
     Active Substance: PROMETHAZINE HYDROCHLORIDE
     Indication: Oral surgery
     Route: 065
     Dates: start: 20230628
  4. VERSED [Suspect]
     Active Substance: MIDAZOLAM HYDROCHLORIDE
     Indication: Oral surgery
     Route: 065
     Dates: start: 20230628

REACTIONS (10)
  - Craniofacial fracture [Unknown]
  - Sedation complication [Unknown]
  - Abnormal behaviour [Unknown]
  - Pain [Unknown]
  - Limb discomfort [Unknown]
  - Feeling abnormal [Unknown]
  - Withdrawal syndrome [Unknown]
  - Drug interaction [Unknown]
  - Drug ineffective [Unknown]
  - Product prescribing issue [Unknown]

NARRATIVE: CASE EVENT DATE: 20230628
